FAERS Safety Report 8406249-5 (Version None)
Quarter: 2012Q2

REPORT INFORMATION
  Report Type: 
  Country: None (occurrence: None)
  Receive Date: 20120604
  Receipt Date: 20120528
  Transmission Date: 20120825
  Serious: Yes (Hospitalization, Other)
  Sender: FDA-Public Use
  Company Number: PHHY2012BR046738

PATIENT
  Sex: Female
  Weight: 85 kg

DRUGS (3)
  1. DIOVAN HCT [Suspect]
     Indication: HYPERTENSION
     Dosage: 1 TABLET (320/12.5 MG) DAILY
     Route: 048
  2. METFORMIN HCL [Suspect]
     Indication: DIABETES MELLITUS
     Dosage: 1 TABLET (850/50 MG) IN THE MORNING AND 1 TABLET (850/50 MG) AT NIGHT
     Route: 048
  3. CARDIZEM [Concomitant]
     Indication: HYPERTENSION
     Dosage: 1 TABLET (60 MG) IN THE MORNING AND 1 TABLET (60 MG) AT NIGHT
     Route: 048

REACTIONS (2)
  - BLOOD GLUCOSE INCREASED [None]
  - RENAL CANCER [None]
